FAERS Safety Report 4694320-3 (Version None)
Quarter: 2005Q2

REPORT INFORMATION
  Report Type: 
  Country: None (occurrence: None)
  Receive Date: 20050620
  Receipt Date: 20050606
  Transmission Date: 20051028
  Serious: Yes (Other)
  Sender: FDA-Public Use
  Company Number: PT-AMGEN-UK137566

PATIENT
  Sex: Male
  Weight: 99 kg

DRUGS (10)
  1. CINACALCET [Suspect]
     Indication: HYPERPARATHYROIDISM SECONDARY
     Route: 048
     Dates: start: 20030416, end: 20030906
  2. DARBEPOETIN ALFA [Concomitant]
     Route: 065
     Dates: start: 20030324
  3. FOLIC ACID [Concomitant]
     Route: 065
  4. BECOZYME [Concomitant]
     Route: 065
  5. ZANTAC [Concomitant]
     Route: 065
     Dates: start: 20010829
  6. WARFARIN SODIUM [Concomitant]
     Route: 065
     Dates: start: 20020924
  7. INDOBUFEN [Concomitant]
     Route: 065
     Dates: start: 19991203
  8. VENOFER [Concomitant]
     Route: 065
     Dates: start: 20021202
  9. CALCIUM GLUCONATE [Concomitant]
     Route: 065
     Dates: start: 19981218
  10. SUCRALFATE [Concomitant]
     Route: 065
     Dates: start: 20031004

REACTIONS (3)
  - DISEASE PROGRESSION [None]
  - HYPERPARATHYROIDISM SECONDARY [None]
  - PANCREATITIS [None]
